FAERS Safety Report 16671183 (Version 1)
Quarter: 2019Q3

REPORT INFORMATION
  Report Type: Spontaneous
  Country: US (occurrence: US)
  Receive Date: 20190805
  Receipt Date: 20190805
  Transmission Date: 20191004
  Serious: Yes (Other)
  Sender: FDA-Public Use
  Company Number: US-AMGEN INC.-USASP2019122432

PATIENT
  Age: 41 Year
  Sex: Female

DRUGS (5)
  1. NAPROXEN. [Concomitant]
     Active Substance: NAPROXEN
     Indication: MIGRAINE WITHOUT AURA
     Dosage: UNK
  2. ERENUMAB [Suspect]
     Active Substance: ERENUMAB
     Indication: MIGRAINE WITHOUT AURA
     Dosage: 70 MILLIGRAM
     Route: 065
  3. NORETHINDRONE [NORETHISTERONE] [Concomitant]
     Indication: CONTRACEPTION
     Dosage: 1 MILLIGRAM
     Dates: start: 2009
  4. RIZATRIPTAN. [Concomitant]
     Active Substance: RIZATRIPTAN
     Indication: MIGRAINE WITHOUT AURA
     Dosage: UNK
     Dates: start: 2018
  5. ETHINYL OESTRADIOL [Concomitant]
     Active Substance: ETHINYL ESTRADIOL
     Indication: CONTRACEPTION
     Dosage: 20 MICROGRAM
     Dates: start: 2009

REACTIONS (1)
  - Thalamic infarction [Recovered/Resolved]
